FAERS Safety Report 7711460-2 (Version None)
Quarter: 2011Q3

REPORT INFORMATION
  Report Type: 
  Country: None (occurrence: None)
  Receive Date: 20110823
  Receipt Date: 20110812
  Transmission Date: 20111222
  Serious: Yes (Hospitalization)
  Sender: FDA-Public Use
  Company Number: 2011038903

PATIENT
  Age: 65 Year
  Sex: Male
  Weight: 92 kg

DRUGS (11)
  1. LANSOPRAZOLE [Concomitant]
  2. BRUFEN- SLOW RELEASE (IBUPROFEN) [Concomitant]
  3. FERRO C (ASCORBIC ACID, FERROUS SULFATE, RIBOFLAVIN, THIAMINE) [Concomitant]
  4. GABAPENTIN [Concomitant]
  5. ZOPICLONE (ZOPICLONE) [Concomitant]
  6. FRAGMIN [Suspect]
     Indication: THROMBOSIS PROPHYLAXIS
     Dosage: 18500 IU, 1X/DAY, SUBCUTANEOUS
     Route: 058
     Dates: start: 20110208, end: 20110211
  7. PAMOL (PARACETAMOL) [Concomitant]
  8. MAGNESIA ^DAK^ (MAGNESIUM OXIDE) [Concomitant]
  9. MAREVAN ^NYCOMED^ (WARFARIN SODIUM) [Concomitant]
  10. TRADOLAN (TRAMADOL HYDROCHLORIDE) [Concomitant]
  11. ASCORBIC ACID [Concomitant]

REACTIONS (2)
  - PRURITUS [None]
  - FEELING HOT [None]
